FAERS Safety Report 4992819-3 (Version None)
Quarter: 2006Q2

REPORT INFORMATION
  Report Type: 
  Country: None (occurrence: None)
  Receive Date: 20060504
  Receipt Date: 20051014
  Transmission Date: 20061013
  Serious: Yes (Hospitalization, Disabling, Other)
  Sender: FDA-Public Use
  Company Number: US-MERCK-0510USA07531

PATIENT
  Age: 58 Year
  Sex: Male
  Weight: 80 kg

DRUGS (9)
  1. CECLOR [Concomitant]
     Route: 065
  2. CATAPRES [Concomitant]
     Indication: HYPERTENSION
     Route: 065
     Dates: start: 20000812, end: 20020701
  3. ADVIL [Concomitant]
     Indication: SPINAL COLUMN STENOSIS
     Route: 065
     Dates: start: 19900101
  4. VIOXX [Suspect]
     Indication: SPINAL COLUMN STENOSIS
     Route: 048
     Dates: start: 19990716, end: 20011107
  5. VIOXX [Suspect]
     Indication: SPINAL OSTEOARTHRITIS
     Route: 048
     Dates: start: 19990716, end: 20011107
  6. ALLOPURINOL [Concomitant]
     Indication: GOUT
     Route: 065
  7. LIPITOR [Concomitant]
     Route: 065
     Dates: start: 19990716, end: 20010101
  8. DYTAC [Concomitant]
     Indication: BLOOD PRESSURE
     Route: 065
  9. FLEXERIL [Concomitant]
     Route: 048

REACTIONS (13)
  - ARTERIOSCLEROSIS [None]
  - BACK PAIN [None]
  - BLOOD TRIGLYCERIDES INCREASED [None]
  - CATARACT [None]
  - CHEST PAIN [None]
  - COLONIC POLYP [None]
  - CORONARY ARTERY DISEASE [None]
  - ERECTILE DYSFUNCTION [None]
  - HERNIA [None]
  - HYPERLIPIDAEMIA [None]
  - LIBIDO DECREASED [None]
  - MYOCARDIAL INFARCTION [None]
  - OEDEMA PERIPHERAL [None]
